FAERS Safety Report 20996802 (Version 1)
Quarter: 2022Q2

REPORT INFORMATION
  Report Type: Spontaneous
  Country: JP (occurrence: JP)
  Receive Date: 20220623
  Receipt Date: 20220623
  Transmission Date: 20220721
  Serious: Yes (Hospitalization, Other)
  Sender: FDA-Public Use
  Company Number: JP-ONO-2022JP016969

PATIENT
  Age: 73 Year
  Sex: Male
  Weight: 59 kg

DRUGS (11)
  1. PARSABIV [Suspect]
     Active Substance: ETELCALCETIDE HYDROCHLORIDE
     Indication: Hyperparathyroidism secondary
     Dosage: 5 MILLIGRAM, Q56H
     Route: 010
     Dates: start: 20181122, end: 20190209
  2. PARSABIV [Suspect]
     Active Substance: ETELCALCETIDE HYDROCHLORIDE
     Dosage: 2.5 MILLIGRAM, Q56H
     Route: 010
     Dates: start: 20190212, end: 20190514
  3. PARSABIV [Suspect]
     Active Substance: ETELCALCETIDE HYDROCHLORIDE
     Dosage: 2.5 MILLIGRAM, Q84H
     Route: 010
     Dates: start: 20190516, end: 20200509
  4. PARSABIV [Suspect]
     Active Substance: ETELCALCETIDE HYDROCHLORIDE
     Dosage: 2.5 MILLIGRAM, QW
     Route: 010
     Dates: start: 20200512
  5. OXAROL [Concomitant]
     Active Substance: MAXACALCITOL
     Indication: Hyperparathyroidism secondary
     Dosage: 2.5 MICROGRAM
     Route: 065
     Dates: end: 20181106
  6. OXAROL [Concomitant]
     Active Substance: MAXACALCITOL
     Dosage: 5 MICROGRAM, Q56H
     Route: 065
     Dates: start: 20181113, end: 20181211
  7. OXAROL [Concomitant]
     Active Substance: MAXACALCITOL
     Dosage: 2.5 MICROGRAM, Q56H
     Route: 065
     Dates: start: 20181213, end: 20190212
  8. OXAROL [Concomitant]
     Active Substance: MAXACALCITOL
     Dosage: 5 MICROGRAM, Q84H
     Route: 065
     Dates: start: 20190216, end: 20190511
  9. OXAROL [Concomitant]
     Active Substance: MAXACALCITOL
     Dosage: 2.5 MICROGRAM, Q84H
     Route: 065
     Dates: start: 20190514
  10. P-tol [Concomitant]
     Dosage: 750 MILLIGRAM, QD
     Route: 065
  11. MIRCERA [Concomitant]
     Active Substance: METHOXY POLYETHYLENE GLYCOL-EPOETIN BETA
     Dosage: 150 MICROGRAM, Q4WK
     Route: 065

REACTIONS (3)
  - Shunt occlusion [Recovered/Resolved]
  - Peripheral arterial occlusive disease [Recovered/Resolved]
  - Peripheral arterial occlusive disease [Recovered/Resolved]

NARRATIVE: CASE EVENT DATE: 20210907
